FAERS Safety Report 9375931 (Version 1)
Quarter: 2013Q2

REPORT INFORMATION
  Report Type: Spontaneous
  Country: US (occurrence: US)
  Receive Date: 20130628
  Receipt Date: 20130628
  Transmission Date: 20140414
  Serious: Yes (Other)
  Sender: FDA-Public Use
  Company Number: US-BAXTER-2013BAX024225

PATIENT
  Age: 59 Year
  Sex: Male

DRUGS (10)
  1. NEXTERONE_AMIODARONE, HYDROCHLORIDE 1.80 MG/ML_SOLUTION FOR INFUSION_B [Suspect]
     Indication: ATRIAL FIBRILLATION
     Route: 065
  2. CYCLOPHOSPHAMIDE FOR INJECTION, USP [Suspect]
     Indication: HAEMATOPOIETIC STEM CELL MOBILISATION
     Route: 065
  3. CYCLOPHOSPHAMIDE FOR INJECTION, USP [Suspect]
     Indication: SARCOMA
     Route: 065
  4. VINCRISTINE [Suspect]
     Indication: SARCOMA
     Route: 065
  5. VP-16 [Suspect]
     Indication: SARCOMA
     Route: 065
  6. PREDNISONE [Suspect]
     Indication: SARCOMA
     Route: 065
  7. PREDNISONE [Suspect]
     Dosage: 60 MG DAILY PO AFTER AMIODARONE WAS STOPPED
     Route: 048
  8. CISPLATIN [Suspect]
     Indication: SARCOMA
     Dosage: 100 MG/M2
     Route: 065
  9. ARA-C [Suspect]
     Indication: SARCOMA
     Route: 065
  10. DEXAMETHASONE [Suspect]
     Indication: SARCOMA
     Route: 065

REACTIONS (1)
  - Pulmonary toxicity [Recovered/Resolved]
